FAERS Safety Report 6224781-X (Version None)
Quarter: 2009Q2

REPORT INFORMATION
  Report Type: 
  Country: None (occurrence: None)
  Receive Date: 20090612
  Receipt Date: 20090417
  Transmission Date: 20091009
  Serious: No
  Sender: FDA-Public Use
  Company Number: US-ABBOTT-09P-163-0565376-00

PATIENT
  Sex: Female
  Weight: 72.64 kg

DRUGS (4)
  1. HUMIRA [Suspect]
     Indication: RHEUMATOID ARTHRITIS
     Route: 058
     Dates: start: 20061201, end: 20090313
  2. HUMIRA [Suspect]
     Route: 058
     Dates: start: 20090414
  3. METHOTREXATE [Concomitant]
     Indication: DRUG USE FOR UNKNOWN INDICATION
  4. DECLINED LONG LIST [Concomitant]
     Indication: DRUG USE FOR UNKNOWN INDICATION

REACTIONS (8)
  - FALL [None]
  - IMPAIRED HEALING [None]
  - LIMB INJURY [None]
  - NASAL CONGESTION [None]
  - OPEN WOUND [None]
  - RESPIRATORY TRACT CONGESTION [None]
  - WEIGHT INCREASED [None]
  - WOUND INFECTION [None]
